FAERS Safety Report 18399780 (Version 1)
Quarter: 2020Q4

REPORT INFORMATION
  Report Type: Spontaneous
  Country: US (occurrence: US)
  Receive Date: 20201019
  Receipt Date: 20201019
  Transmission Date: 20210114
  Serious: No
  Sender: FDA-Public Use
  Company Number: US-ALLERGAN-2017980US

PATIENT
  Age: 16 Year
  Sex: Male
  Weight: 136.05 kg

DRUGS (6)
  1. XANAX [Concomitant]
     Active Substance: ALPRAZOLAM
     Indication: ANXIETY
     Dosage: UNK
     Route: 048
  2. CLONIDINE. [Concomitant]
     Active Substance: CLONIDINE
     Dosage: UNK
     Route: 048
  3. VRAYLAR [Suspect]
     Active Substance: CARIPRAZINE
     Indication: BIPOLAR I DISORDER
     Dosage: 1.5 MG, QD
     Route: 048
     Dates: start: 20200427, end: 202005
  4. PERPHENAZINE. [Concomitant]
     Active Substance: PERPHENAZINE
  5. VRAYLAR [Suspect]
     Active Substance: CARIPRAZINE
     Indication: AGGRESSION
     Dosage: 1.5 MG, QD
     Route: 048
     Dates: start: 20200521
  6. INVEGA [Concomitant]
     Active Substance: PALIPERIDONE
     Dosage: UNK
     Route: 048

REACTIONS (6)
  - Diarrhoea [Unknown]
  - Vomiting [Unknown]
  - Suspected COVID-19 [Unknown]
  - Off label use [Unknown]
  - Discontinued product administered [Unknown]
  - Weight decreased [Not Recovered/Not Resolved]

NARRATIVE: CASE EVENT DATE: 20200521
